FAERS Safety Report 20187596 (Version 1)
Quarter: 2021Q4

REPORT INFORMATION
  Report Type: Spontaneous
  Country: US (occurrence: None)
  Receive Date: 20211215
  Receipt Date: 20211215
  Transmission Date: 20220303
  Serious: Yes (Life-Threatening, Hospitalization)
  Sender: FDA-Public Use
  Company Number: None

PATIENT
  Age: 78 Year
  Sex: Female
  Weight: 57.2 kg

DRUGS (8)
  1. OLUMIANT [Suspect]
     Active Substance: BARICITINIB
     Indication: COVID-19
     Dosage: FREQUENCY : DAILY;?
     Route: 048
     Dates: start: 20211213, end: 20211214
  2. albuterol 90mcg/act inhaler [Concomitant]
     Dates: start: 20211212, end: 20211214
  3. SOLU-MEDROL [Concomitant]
     Active Substance: METHYLPREDNISOLONE SODIUM SUCCINATE
     Dates: start: 20211212, end: 20211214
  4. AMLODIPINE [Concomitant]
     Active Substance: AMLODIPINE BESYLATE
     Dates: start: 20211212, end: 20211214
  5. ATORVASTATIN [Concomitant]
     Active Substance: ATORVASTATIN
     Dates: start: 20211212, end: 20211214
  6. MAGNESIUM OXIDE 400MG [Concomitant]
     Active Substance: MAGNESIUM OXIDE
     Dates: start: 20211213, end: 20211214
  7. TYLENOL [Concomitant]
     Active Substance: ACETAMINOPHEN
     Dates: start: 20211212, end: 20211214
  8. Potassium IV [Concomitant]
     Dates: start: 20211212, end: 20211213

REACTIONS (8)
  - Asthenia [None]
  - Dyspnoea [None]
  - Fall [None]
  - Hypokalaemia [None]
  - COVID-19 [None]
  - Dyspnoea [None]
  - Feeling abnormal [None]
  - Acute myocardial infarction [None]

NARRATIVE: CASE EVENT DATE: 20211214
